FAERS Safety Report 6689411-1 (Version None)
Quarter: 2010Q2

REPORT INFORMATION
  Report Type: 
  Country: None (occurrence: None)
  Receive Date: 20100419
  Receipt Date: 20100419
  Transmission Date: 20101027
  Serious: Yes (Other)
  Sender: FDA-Public Use
  Company Number: None

PATIENT
  Age: 42 Year
  Sex: Female
  Weight: 78.9259 kg

DRUGS (12)
  1. BUPROPION HCL [Suspect]
     Indication: DEPRESSION
     Dosage: ONCE QD
  2. BUPROPION HCL [Suspect]
     Indication: DEPRESSION
     Dosage: ONCE QD
  3. TIZANIDINE HCL [Concomitant]
  4. LIDODERM [Concomitant]
  5. DIVALPROEX SODIUM [Concomitant]
  6. METOCLOPRAMIDE HYDROCHLORIDE [Concomitant]
  7. CLONAZEPAM [Concomitant]
  8. RANITIDINE [Concomitant]
  9. VALACYCLOVIR [Concomitant]
  10. NAPROSYN [Concomitant]
  11. AVINZA [Concomitant]
  12. OXYCODONE HCL [Concomitant]

REACTIONS (2)
  - DEPRESSED MOOD [None]
  - PRODUCT SUBSTITUTION ISSUE [None]
